FAERS Safety Report 4562681-1 (Version None)
Quarter: 2005Q1

REPORT INFORMATION
  Report Type: 
  Country: None (occurrence: None)
  Receive Date: 20050124
  Receipt Date: 20050110
  Transmission Date: 20050727
  Serious: Yes (Death, Other)
  Sender: FDA-Public Use
  Company Number: 2004053312

PATIENT
  Age: 45 Year
  Sex: Female
  Weight: 75 kg

DRUGS (9)
  1. LIPITOR [Suspect]
     Indication: HYPERLIPIDAEMIA
     Dosage: 10 MG (10 MG, 1 IN 1 D), ORAL
     Route: 048
     Dates: start: 20000214, end: 20000228
  2. SIROLIMUS (SIROLIMUS) [Suspect]
     Indication: LIVER TRANSPLANT
     Dosage: 2 MG (2 MG, 1 IN 1 D), ORAL
     Route: 048
     Dates: start: 19991115
  3. DILTIAZEM HYDROCHLORIDE [Concomitant]
  4. CYCLOSPORINE [Concomitant]
  5. DIDRONEL PMO ^NORWICH EATON^ (CALCIUM CARBONATE, ETIDRONATE DISODIUM) [Concomitant]
  6. ZOPICLONE (ZOPICLONE) [Concomitant]
  7. METHADONE HCL [Concomitant]
  8. MULTIVITAMINS (ASCORBIC ACID, ERGOCALCIFEROL, FOLIC ACID, NICOTINAMIDE [Concomitant]
  9. LEVOTHYROXINE SODIUM [Concomitant]

REACTIONS (1)
  - RHABDOMYOLYSIS [None]
